FAERS Safety Report 20529966 (Version 4)
Quarter: 2022Q2

REPORT INFORMATION
  Report Type: Report from Study
  Country: US (occurrence: US)
  Receive Date: 20220301
  Receipt Date: 20220525
  Transmission Date: 20220721
  Serious: Yes (Other)
  Sender: FDA-Public Use
  Company Number: US-ABBVIE-22K-163-4249598-00

PATIENT
  Sex: Female
  Weight: 47.670 kg

DRUGS (2)
  1. RINVOQ [Suspect]
     Active Substance: UPADACITINIB
     Indication: Rheumatoid arthritis
     Route: 048
     Dates: start: 202108, end: 20220413
  2. RINVOQ [Suspect]
     Active Substance: UPADACITINIB
     Route: 048
     Dates: start: 20220511

REACTIONS (9)
  - Vulvectomy [Recovered/Resolved]
  - Limb injury [Not Recovered/Not Resolved]
  - Insomnia [Not Recovered/Not Resolved]
  - Joint range of motion decreased [Not Recovered/Not Resolved]
  - Neoplasm skin [Unknown]
  - Precancerous condition [Recovered/Resolved]
  - Weight decreased [Recovering/Resolving]
  - Joint range of motion decreased [Not Recovered/Not Resolved]
  - Rheumatoid arthritis [Recovered/Resolved]

NARRATIVE: CASE EVENT DATE: 20220101
